FAERS Safety Report 14482767 (Version 2)
Quarter: 2021Q4

REPORT INFORMATION
  Report Type: Spontaneous
  Country: US (occurrence: US)
  Receive Date: 20180203
  Receipt Date: 20211122
  Transmission Date: 20220303
  Serious: Yes (Disabling, Other)
  Sender: FDA-Public Use
  Company Number: US-TEVA-2018-US-854516

PATIENT
  Age: 63 Year
  Sex: Female
  Weight: 91.1 kg

DRUGS (10)
  1. DOCETAXEL [Suspect]
     Active Substance: DOCETAXEL
     Indication: Hormone receptor positive HER2 negative breast cancer
     Dosage: 250 ML NS IV OVER 1 HOUR 75 MG/M2, NUMBER OF CYCLE - 06, FREQUENCY - EVERY THREE WEEKS
     Route: 042
     Dates: start: 20130506, end: 20130828
  2. DOCETAXEL [Suspect]
     Active Substance: DOCETAXEL
     Dosage: 250 ML NS IV OVER 1 HOUR 75 MG/M2, NUMBER OF CYCLE - 06, FREQUENCY - EVERY THREE WEEKS
     Route: 042
     Dates: start: 20130506, end: 20130828
  3. DOCETAXEL [Suspect]
     Active Substance: DOCETAXEL
     Indication: Hormone receptor positive HER2 negative breast cancer
     Dosage: 250 ML NS IV OVER 1 HOUR 75 MG/M2, NUMBER OF CYCLE - 06, FREQUENCY - EVERY THREE WEEKS
     Route: 042
     Dates: start: 20130506, end: 20130828
  4. DOCETAXEL [Suspect]
     Active Substance: DOCETAXEL
     Dosage: 250 ML NS IV OVER 1 HOUR 75 MG/M2, NUMBER OF CYCLE - 06, FREQUENCY - EVERY THREE WEEKS
     Route: 042
     Dates: start: 20130506, end: 20130828
  5. CARBOPLATIN [Concomitant]
     Active Substance: CARBOPLATIN
     Indication: Hormone receptor positive HER2 negative breast cancer
     Dosage: 250 ML NS IV OVER 30-60 MIN, FREQUENCY - EVERY THREE WEEKS
     Route: 042
     Dates: start: 20130606, end: 20130828
  6. TRASTUZUMAB [Concomitant]
     Active Substance: TRASTUZUMAB
     Indication: Hormone receptor positive HER2 negative breast cancer
     Dosage: NUMBER OF CYCLE - 06, FREQUENCY - EVERY THREE WEEKS
     Route: 042
     Dates: start: 20130506, end: 20130828
  7. LOSARTAN POTASSIUM [Concomitant]
     Active Substance: LOSARTAN POTASSIUM
     Dosage: 100 MILLIGRAM DAILY;
     Route: 048
     Dates: start: 20060101
  8. AMLODIPINE BESYLATE [Concomitant]
     Active Substance: AMLODIPINE BESYLATE
     Dosage: 5 MILLIGRAM DAILY;
     Route: 048
     Dates: start: 20060101
  9. SYNTHROID [Concomitant]
     Active Substance: LEVOTHYROXINE SODIUM
     Dosage: 75 MICROGRAM DAILY;
     Route: 048
     Dates: start: 20060101
  10. VITAMIN D NOS [Concomitant]
     Active Substance: VITAMIN D NOS
     Route: 048

REACTIONS (9)
  - Alopecia areata [Not Recovered/Not Resolved]
  - Madarosis [Not Recovered/Not Resolved]
  - Tricuspid valve incompetence [Unknown]
  - Mitral valve incompetence [Unknown]
  - Hair texture abnormal [Not Recovered/Not Resolved]
  - Hair colour changes [Not Recovered/Not Resolved]
  - Pulmonary arterial pressure abnormal [Unknown]
  - Cholelithiasis [Unknown]
  - Dysphagia [Unknown]

NARRATIVE: CASE EVENT DATE: 20140114
